FAERS Safety Report 8546432-1 (Version None)
Quarter: 2012Q3

REPORT INFORMATION
  Report Type: 
  Country: None (occurrence: None)
  Receive Date: 20120727
  Receipt Date: 20120109
  Transmission Date: 20120928
  Serious: No
  Sender: FDA-Public Use
  Company Number: US-ASTRAZENECA-2012SE01569

PATIENT
  Age: 51 Year
  Sex: Male
  Weight: 124.7 kg

DRUGS (10)
  1. CLONOPIN [Concomitant]
     Indication: ANXIETY
  2. SIMVASTATIN [Concomitant]
     Indication: BLOOD CHOLESTEROL INCREASED
  3. LITHIUM CARBONATE [Concomitant]
  4. ASPIRIN [Concomitant]
  5. ANALOPRIL [Concomitant]
     Indication: HYPERTENSION
  6. DEXILANT [Concomitant]
     Indication: GASTROOESOPHAGEAL REFLUX DISEASE
  7. SEROQUEL [Suspect]
     Indication: BIPOLAR DISORDER
     Route: 048
  8. HYDROXYZINE [Concomitant]
  9. HYDROCHLOROTHIAZIDE [Concomitant]
  10. VELTRAX [Concomitant]

REACTIONS (1)
  - COELIAC DISEASE [None]
